FAERS Safety Report 11167413 (Version 3)
Quarter: 2015Q2

REPORT INFORMATION
  Report Type: Report from Study
  Country: US (occurrence: US)
  Receive Date: 20150605
  Receipt Date: 20150616
  Transmission Date: 20150821
  Serious: Yes (Other)
  Sender: FDA-Public Use
  Company Number: US-UCBSA-2015016919

PATIENT
  Age: 29 Year
  Sex: Female
  Weight: 97 kg

DRUGS (2)
  1. VITAMIN B12 [Concomitant]
     Active Substance: CYANOCOBALAMIN
     Indication: VITAMIN B12 DEFICIENCY
     Dosage: 500 ?G, ONCE DAILY (QD)
     Route: 048
     Dates: start: 20150305
  2. CERTOLIZUMAB PEGOL [Suspect]
     Active Substance: CERTOLIZUMAB PEGOL
     Indication: PSORIASIS
     Dosage: UNK
     Route: 058
     Dates: end: 20150520

REACTIONS (1)
  - Histoplasmosis [Recovering/Resolving]

NARRATIVE: CASE EVENT DATE: 20150519
